FAERS Safety Report 6029856-6 (Version None)
Quarter: 2009Q1

REPORT INFORMATION
  Report Type: 
  Country: None (occurrence: None)
  Receive Date: 20090106
  Receipt Date: 20090106
  Transmission Date: 20090719
  Serious: Yes (Hospitalization)
  Sender: FDA-Public Use
  Company Number: None

PATIENT
  Sex: Male
  Weight: 90.7194 kg

DRUGS (1)
  1. ISOSORBIDE MONONITRATE [Suspect]
     Indication: BLOOD PRESSURE DECREASED
     Dosage: 120 MGS DAILY
     Dates: start: 20080201, end: 20081001

REACTIONS (8)
  - ARTHROPATHY [None]
  - BLOOD PRESSURE INCREASED [None]
  - DYSPNOEA EXERTIONAL [None]
  - GAIT DISTURBANCE [None]
  - OEDEMA [None]
  - OEDEMA PERIPHERAL [None]
  - SOMNOLENCE [None]
  - WEIGHT INCREASED [None]
